FAERS Safety Report 7699914-9 (Version None)
Quarter: 2011Q3

REPORT INFORMATION
  Report Type: 
  Country: None (occurrence: None)
  Receive Date: 20110822
  Receipt Date: 20110810
  Transmission Date: 20111222
  Serious: Yes (Hospitalization)
  Sender: FDA-Public Use
  Company Number: US-JNJFOC-20100802452

PATIENT
  Sex: Male
  Weight: 25.6 kg

DRUGS (10)
  1. PEPTAMEN [Concomitant]
     Dosage: PEPTAMEN JUNIOR 1.5 3 CANS OVER NIGHT VIA GT
  2. MERCAPTOPURINE [Concomitant]
     Dosage: 25 MG EVERY OTHER DAY
  3. HUMIRA [Concomitant]
     Indication: CROHN'S DISEASE
     Dosage: EVERY OTHER SATURDAY
     Route: 058
  4. TRIAMCINOLONE [Concomitant]
  5. CEPHALOSPORINS [Concomitant]
  6. MIRALAX [Concomitant]
  7. INFLIXIMAB, RECOMBINANT [Suspect]
     Indication: CROHN'S DISEASE
     Route: 042
     Dates: start: 20090602, end: 20100216
  8. MINERAL OIL EMULSION [Concomitant]
  9. MESALAMINE [Concomitant]
     Route: 048
  10. CHOLECALCIFEROL [Concomitant]

REACTIONS (1)
  - CROHN'S DISEASE [None]
